FAERS Safety Report 6668751-6 (Version None)
Quarter: 2010Q2

REPORT INFORMATION
  Report Type: 
  Country: None (occurrence: None)
  Receive Date: 20100401
  Receipt Date: 20100318
  Transmission Date: 20101027
  Serious: Yes (Death, Hospitalization)
  Sender: FDA-Public Use
  Company Number: 2009-2365

PATIENT
  Age: 75 Year
  Sex: Female

DRUGS (2)
  1. APO-GO AMPOULES (APO-GO) (APOMORPHINE HYDROCHLORIDE) (APOMORPHINE HYDR [Suspect]
     Dosage: 2.5 MG PER HOUR FROM 07:00 TO 20:00 DAILY (32.5MG) (2.5 MG , 1 IN 1 HR), SUBCUTANEOUS
     Route: 058
     Dates: start: 20090120
  2. APO-GO AMPOULES (APO-GO) (APOMORPHINE HYDROCHLORIDE) (APOMORPHINE HYDR [Suspect]
     Dosage: 2.5 MG PER HOUR FROM 07:00 TO 20:00 DAILY (32.5MG) (2.5 MG , 1 IN 1 HR), SUBCUTANEOUS
     Route: 058
     Dates: start: 20100101

REACTIONS (4)
  - MUSCLE RIGIDITY [None]
  - NAUSEA [None]
  - PNEUMONIA [None]
  - VOMITING [None]
